FAERS Safety Report 11409594 (Version 3)
Quarter: 2015Q4

REPORT INFORMATION
  Report Type: Spontaneous
  Country: IE (occurrence: IE)
  Receive Date: 20150824
  Receipt Date: 20151006
  Transmission Date: 20160304
  Serious: Yes (Other)
  Sender: FDA-Public Use
  Company Number: PHFR2014IE004155

PATIENT
  Age: 42 Year
  Sex: Male

DRUGS (1)
  1. CLOZARIL [Suspect]
     Active Substance: CLOZAPINE
     Indication: SCHIZOPHRENIA
     Dosage: UNK
     Route: 048
     Dates: start: 20100407

REACTIONS (4)
  - Blood parathyroid hormone increased [Unknown]
  - Mean cell volume increased [Unknown]
  - Renal failure [Unknown]
  - Platelet count increased [Unknown]

NARRATIVE: CASE EVENT DATE: 20141203
